FAERS Safety Report 10019105 (Version 1)
Quarter: 2014Q1

REPORT INFORMATION
  Report Type: Spontaneous
  Country: US (occurrence: US)
  Receive Date: 20140318
  Receipt Date: 20140318
  Transmission Date: 20141002
  Serious: Yes (Other)
  Sender: FDA-Public Use
  Company Number: US-BAYER-2014-039027

PATIENT
  Age: 60 Year
  Sex: Male

DRUGS (1)
  1. ULTRAVIST INJECTION [Suspect]
     Indication: ANGIOGRAM
     Dosage: 145 ML, ONCE
     Route: 042
     Dates: start: 20140307, end: 20140307

REACTIONS (4)
  - Mental status changes [Recovering/Resolving]
  - Dyspnoea [None]
  - Hyperhidrosis [None]
  - Cold sweat [None]
